FAERS Safety Report 25652608 (Version 3)
Quarter: 2025Q3

REPORT INFORMATION
  Report Type: Report from Study
  Country: US (occurrence: US)
  Receive Date: 20250807
  Receipt Date: 20250919
  Transmission Date: 20251021
  Serious: No
  Sender: SUNOVION
  Company Number: US-SMPA-2025SPA009843

PATIENT
  Age: 59 Year
  Sex: Male
  Weight: 132.43 kg

DRUGS (11)
  1. ORGOVYX [Suspect]
     Active Substance: RELUGOLIX
     Indication: Prostate cancer
     Route: 048
  2. ORGOVYX [Suspect]
     Active Substance: RELUGOLIX
     Route: 048
  3. ATORVASTATIN [Concomitant]
     Active Substance: ATORVASTATIN
  4. COLESTIPOL [Concomitant]
     Active Substance: COLESTIPOL
  5. HYDRALAZINE [Concomitant]
     Active Substance: HYDRALAZINE HYDROCHLORIDE
  6. LISINOPRIL [Concomitant]
     Active Substance: LISINOPRIL
  7. METOPROLOL SUCCINATE [Concomitant]
     Active Substance: METOPROLOL SUCCINATE
  8. MIRABEGRON [Concomitant]
     Active Substance: MIRABEGRON
  9. SPIRONOLACTONE [Concomitant]
     Active Substance: SPIRONOLACTONE
  10. VITAMIN C [Concomitant]
     Active Substance: ASCORBIC ACID
  11. XTANDI [Concomitant]
     Active Substance: ENZALUTAMIDE

REACTIONS (4)
  - Pollakiuria [Recovering/Resolving]
  - Dysuria [Recovered/Resolved]
  - Fatigue [Not Recovered/Not Resolved]
  - Hot flush [Not Recovered/Not Resolved]
